FAERS Safety Report 6826689-5 (Version None)
Quarter: 2010Q3

REPORT INFORMATION
  Report Type: 
  Country: None (occurrence: None)
  Receive Date: 20100709
  Receipt Date: 20100702
  Transmission Date: 20110219
  Serious: Yes (Death, Other)
  Sender: FDA-Public Use
  Company Number: US-PFIZER INC-2010077521

PATIENT
  Sex: Male
  Weight: 75 kg

DRUGS (7)
  1. CHANTIX [Suspect]
     Indication: SMOKING CESSATION THERAPY
     Dosage: 0.5 MG, 1X/DAY
     Route: 048
     Dates: start: 20080101
  2. CHANTIX [Interacting]
     Dosage: 1 MG, UNK
  3. NICOTINE [Interacting]
     Dosage: UNK
  4. CAFFEINE [Interacting]
     Dosage: UNK
  5. COFFEE [Interacting]
     Dosage: UNK
  6. SEROQUEL [Suspect]
     Indication: SLEEP DISORDER
     Dosage: UNK
  7. METHADONE HCL [Interacting]

REACTIONS (3)
  - DRUG INTERACTION [None]
  - OVERDOSE [None]
  - SLEEP DISORDER [None]
